FAERS Safety Report 24167560 (Version 1)
Quarter: 2024Q3

REPORT INFORMATION
  Report Type: Spontaneous
  Country: FR (occurrence: FR)
  Receive Date: 20240802
  Receipt Date: 20240802
  Transmission Date: 20241016
  Serious: Yes (Other)
  Sender: TEVA
  Company Number: None

PATIENT
  Age: 44 Year
  Sex: Female
  Weight: 63 kg

DRUGS (1)
  1. PEMETREXED [Suspect]
     Active Substance: PEMETREXED
     Indication: Lung adenocarcinoma
     Dosage: TIME INTERVAL: CYCLICAL: DOSAGE: 500 MG/M^3 500 MG/M2/CYCLE
     Route: 042
     Dates: start: 20231005, end: 20240321

REACTIONS (1)
  - Erysipeloid [Recovered/Resolved]

NARRATIVE: CASE EVENT DATE: 20240118
